FAERS Safety Report 4517264-6 (Version None)
Quarter: 2004Q4

REPORT INFORMATION
  Report Type: 
  Country: None (occurrence: None)
  Receive Date: 20041001
  Receipt Date: 20031125
  Transmission Date: 20050328
  Serious: Yes (Other)
  Sender: FDA-Public Use
  Company Number: PHEH2003US09982

PATIENT
  Sex: 0

DRUGS (1)
  1. LOPRESSOR [Suspect]
     Indication: ARRHYTHMIA
     Dosage: QD
     Dates: start: 20030901, end: 20031029

REACTIONS (1)
  - IDIOPATHIC THROMBOCYTOPENIC PURPURA [None]
